FAERS Safety Report 11639474 (Version 1)
Quarter: 2015Q4

REPORT INFORMATION
  Report Type: Spontaneous
  Country: PL (occurrence: PL)
  Receive Date: 20151019
  Receipt Date: 20151019
  Transmission Date: 20160304
  Serious: Yes (Other)
  Sender: FDA-Public Use
  Company Number: PL-ROCHE-1646816

PATIENT
  Sex: Female

DRUGS (2)
  1. KETONAL (POLAND) [Concomitant]
  2. AVASTIN [Suspect]
     Active Substance: BEVACIZUMAB
     Indication: OVARIAN CANCER
     Dosage: 16/AUG/2015, LAST DOSE DATE
     Route: 065
     Dates: start: 20150420, end: 20150816

REACTIONS (2)
  - Gastric ulcer perforation [Recovered/Resolved]
  - Peritoneal neoplasm [Recovered/Resolved]

NARRATIVE: CASE EVENT DATE: 20150823
